FAERS Safety Report 11298329 (Version 1)
Quarter: 2015Q3

REPORT INFORMATION
  Report Type: Spontaneous
  Country: US (occurrence: US)
  Receive Date: 20150722
  Receipt Date: 20150722
  Transmission Date: 20151125
  Serious: No
  Sender: FDA-Public Use
  Company Number: US-ELI_LILLY_AND_COMPANY-US201107001431

PATIENT
  Sex: Male

DRUGS (2)
  1. HUMATROPE [Suspect]
     Active Substance: SOMATROPIN
     Indication: GROWTH HORMONE DEFICIENCY
     Dosage: 2.7 MG, EACH EVENING
  2. HUMATROPE [Suspect]
     Active Substance: SOMATROPIN
     Dosage: 4 MG, QD

REACTIONS (3)
  - Medication error [Unknown]
  - Arthralgia [Unknown]
  - Pyrexia [Unknown]
